FAERS Safety Report 9241265 (Version 1)
Quarter: 2013Q1

REPORT INFORMATION
  Report Type: Spontaneous
  Country: US (occurrence: None)
  Receive Date: 20121113
  Receipt Date: 20121113
  Transmission Date: 20140127
  Serious: Yes (Other)
  Sender: FDA-Public Use
  Company Number: PHEH2011US010291

PATIENT
  Age: 83 Year
  Sex: Female
  Weight: 59 kg

DRUGS (3)
  1. TRILEPTAL [Suspect]
     Indication: FACIAL NEURALGIA
     Dosage: 2 DF, BID, ORAL
     Route: 048
  2. RANITIDINE [Concomitant]
  3. ANACIN [Concomitant]

REACTIONS (1)
  - Infrequent bowel movements [None]
